FAERS Safety Report 7628239-2 (Version None)
Quarter: 2011Q3

REPORT INFORMATION
  Report Type: 
  Country: None (occurrence: None)
  Receive Date: 20110714
  Receipt Date: 20110629
  Transmission Date: 20111222
  Serious: Yes (Hospitalization)
  Sender: FDA-Public Use
  Company Number: DSM-2011-00676

PATIENT
  Age: 87 Year
  Sex: Female

DRUGS (4)
  1. ALLOPURINOL [Concomitant]
  2. OLMESARTAN MEDOXOMIL [Suspect]
     Indication: HYPERTENSION
     Dosage: 10 MG, ORAL
     Route: 048
     Dates: start: 20090101, end: 20110601
  3. BISOPROLOL FUMARATE [Suspect]
     Indication: HYPERTENSION
     Dosage: 2.5 MG, ORAL ; 1.25 MG, ORAL
     Route: 048
  4. TRIAMTERENE/HYDROCHLOROTHIAZIDE [Suspect]
     Indication: HYPERTENSION
     Dosage: 50/25 MG,ORAL
     Route: 048

REACTIONS (9)
  - MACROANGIOPATHY [None]
  - MULTIPLE FRACTURES [None]
  - ORTHOSTATIC HYPOTENSION [None]
  - CONCUSSION [None]
  - FALL [None]
  - SYNCOPE [None]
  - FRACTURE DISPLACEMENT [None]
  - FACIAL BONES FRACTURE [None]
  - ATRIAL FIBRILLATION [None]
